FAERS Safety Report 18772197 (Version 1)
Quarter: 2021Q1

REPORT INFORMATION
  Report Type: Spontaneous
  Country: US (occurrence: US)
  Receive Date: 20210122
  Receipt Date: 20210122
  Transmission Date: 20210419
  Serious: Yes (Other)
  Sender: FDA-Public Use
  Company Number: US-ROCHE-2753491

PATIENT
  Sex: Female
  Weight: 50.39 kg

DRUGS (7)
  1. CALTRATE [Concomitant]
     Active Substance: CALCIUM CARBONATE
     Indication: PRODUCT USED FOR UNKNOWN INDICATION
     Route: 048
  2. XELODA [Suspect]
     Active Substance: CAPECITABINE
     Indication: BREAST CANCER FEMALE
     Dosage: 1000 MG IN AM / 500 MG IN PM, CYCLE 7 DAYS ON AND 7 DAYS OFF REPEAT
     Route: 048
     Dates: start: 20200812
  3. SYNTHROID [Concomitant]
     Active Substance: LEVOTHYROXINE SODIUM
     Indication: THYROID MASS
     Dosage: TAKES MONDAY THRU SATURDAY NONE SUNDAY
     Route: 048
  4. VITAMIN D3 [Concomitant]
     Active Substance: CHOLECALCIFEROL
     Indication: PRODUCT USED FOR UNKNOWN INDICATION
     Route: 048
  5. XELODA [Suspect]
     Active Substance: CAPECITABINE
     Dosage: TAKES 2 IN AM 1 IN PM DAILY, EVERY OTHER WEEK
     Route: 048
     Dates: start: 2009
  6. LIPITOR [Concomitant]
     Active Substance: ATORVASTATIN CALCIUM
     Indication: BLOOD CHOLESTEROL INCREASED
     Route: 048
  7. VITAMIN B12 [Concomitant]
     Active Substance: CYANOCOBALAMIN
     Indication: ANAEMIA
     Route: 060

REACTIONS (5)
  - Pruritus [Not Recovered/Not Resolved]
  - Body height decreased [Not Recovered/Not Resolved]
  - Limb mass [Not Recovered/Not Resolved]
  - Deafness unilateral [Not Recovered/Not Resolved]
  - Hyperkeratosis [Not Recovered/Not Resolved]
